FAERS Safety Report 5511932-5 (Version None)
Quarter: 2007Q4

REPORT INFORMATION
  Report Type: 
  Country: None (occurrence: None)
  Receive Date: 20071109
  Receipt Date: 20071029
  Transmission Date: 20080405
  Serious: Yes (Other)
  Sender: FDA-Public Use
  Company Number: US-PFIZER INC-2007091812

PATIENT
  Sex: Male

DRUGS (3)
  1. LYRICA [Suspect]
  2. KEPPRA [Interacting]
  3. CYMBALTA [Interacting]

REACTIONS (2)
  - CONVULSION [None]
  - DRUG INTERACTION [None]
